FAERS Safety Report 7436028-7 (Version None)
Quarter: 2011Q2

REPORT INFORMATION
  Report Type: 
  Country: None (occurrence: None)
  Receive Date: 20110425
  Receipt Date: 20110414
  Transmission Date: 20111010
  Serious: Yes (Other)
  Sender: FDA-Public Use
  Company Number: IT-BAYER-2011-032703

PATIENT
  Age: 62 Year
  Sex: Female

DRUGS (1)
  1. CIPROFLOXACIN [Suspect]
     Indication: BRONCHITIS CHRONIC
     Dosage: 1 DF, QD
     Route: 048
     Dates: start: 20110101, end: 20110101

REACTIONS (3)
  - ERYTHEMA [None]
  - HYPOXIA [None]
  - BRONCHOSPASM [None]
